FAERS Safety Report 24149230 (Version 1)
Quarter: 2024Q3

REPORT INFORMATION
  Report Type: Spontaneous
  Country: US (occurrence: US)
  Receive Date: 20240729
  Receipt Date: 20240729
  Transmission Date: 20241016
  Serious: No
  Sender: JOHNSON AND JOHNSON
  Company Number: US-JNJFOC-20240769526

PATIENT
  Age: 18 Year
  Sex: Male

DRUGS (5)
  1. RISPERDAL M-TAB [Suspect]
     Active Substance: RISPERIDONE
     Indication: Schizophrenia
     Dosage: EVERY 12 HOURS
     Route: 048
     Dates: start: 201009
  2. RISPERDAL M-TAB [Suspect]
     Active Substance: RISPERIDONE
     Dosage: EVERY 12 HOURS
     Route: 048
     Dates: start: 20101001
  3. RISPERDAL M-TAB [Suspect]
     Active Substance: RISPERIDONE
     Dosage: EVERY 12 HOURS
     Route: 048
     Dates: start: 20101005
  4. RISPERDAL M-TAB [Suspect]
     Active Substance: RISPERIDONE
     Dosage: AT BEDTIME
     Route: 048
     Dates: start: 20101006
  5. RISPERDAL M-TAB [Suspect]
     Active Substance: RISPERIDONE
     Dosage: 1 MG IN THE MORNING AND 2 MG AT BEDTIME.
     Route: 048
     Dates: start: 20101008

REACTIONS (1)
  - Treatment noncompliance [Unknown]

NARRATIVE: CASE EVENT DATE: 20101001
